FAERS Safety Report 6203679-7 (Version None)
Quarter: 2009Q2

REPORT INFORMATION
  Report Type: 
  Country: None (occurrence: None)
  Receive Date: 20090522
  Receipt Date: 20090522
  Transmission Date: 20091009
  Serious: Yes (Hospitalization)
  Sender: FDA-Public Use
  Company Number: None

PATIENT
  Age: 33 Year
  Sex: Female

DRUGS (2)
  1. BANZEL [Suspect]
     Indication: EPILEPSY
     Dosage: 600MG -400MG+200MG- BID X 7 DAYS PO
     Route: 048
     Dates: start: 20090429, end: 20090505
  2. BANZEL [Suspect]

REACTIONS (3)
  - ORAL MUCOSAL ERUPTION [None]
  - PYREXIA [None]
  - RASH MACULO-PAPULAR [None]
